FAERS Safety Report 12245412 (Version 1)
Quarter: 2016Q2

REPORT INFORMATION
  Report Type: Spontaneous
  Country: GB (occurrence: GB)
  Receive Date: 20160407
  Receipt Date: 20160407
  Transmission Date: 20160815
  Serious: Yes (Death)
  Sender: FDA-Public Use
  Company Number: GB-TEVA-648771ACC

PATIENT
  Sex: Male

DRUGS (5)
  1. MYFENAX [Suspect]
     Active Substance: MYCOPHENOLATE MOFETIL
     Route: 065
  2. ADOPORT (SANDOZ) [Suspect]
     Active Substance: TACROLIMUS
     Route: 065
  3. ADOPORT (SANDOZ) [Suspect]
     Active Substance: TACROLIMUS
     Route: 065
  4. PREDNISOLONE. [Suspect]
     Active Substance: PREDNISOLONE
     Route: 065
  5. ADOPORT (SANDOZ) [Suspect]
     Active Substance: TACROLIMUS
     Route: 065

REACTIONS (1)
  - Death [Fatal]
